FAERS Safety Report 16992276 (Version 2)
Quarter: 2019Q4

REPORT INFORMATION
  Report Type: Spontaneous
  Country: NL (occurrence: NL)
  Receive Date: 20191105
  Receipt Date: 20191110
  Transmission Date: 20200122
  Serious: Yes (Other)
  Sender: FDA-Public Use
  Company Number: NL-TEVA-2019-NL-1131536

PATIENT
  Sex: Male

DRUGS (1)
  1. LEVODOPA/CARBIDOPA 125 MG TEVA [Suspect]
     Active Substance: CARBIDOPA\LEVODOPA
     Route: 065

REACTIONS (17)
  - Condition aggravated [Unknown]
  - Pneumonia [Not Recovered/Not Resolved]
  - Peripheral swelling [Unknown]
  - Fluid retention [Unknown]
  - Fall [Unknown]
  - General physical health deterioration [Unknown]
  - Fungal infection [Unknown]
  - Product substitution issue [Unknown]
  - Polyuria [Not Recovered/Not Resolved]
  - Dyskinesia [Not Recovered/Not Resolved]
  - Malaise [Not Recovered/Not Resolved]
  - Nocturia [Not Recovered/Not Resolved]
  - Dizziness [Unknown]
  - Gait inability [Not Recovered/Not Resolved]
  - Muscle rigidity [Not Recovered/Not Resolved]
  - Somnolence [Not Recovered/Not Resolved]
  - Muscular weakness [Unknown]
